FAERS Safety Report 7592526-7 (Version None)
Quarter: 2011Q3

REPORT INFORMATION
  Report Type: 
  Country: None (occurrence: None)
  Receive Date: 20110706
  Receipt Date: 20110623
  Transmission Date: 20111222
  Serious: Yes (Other)
  Sender: FDA-Public Use
  Company Number: IT-ELI_LILLY_AND_COMPANY-IT201105003436

PATIENT
  Sex: Male

DRUGS (5)
  1. OLANZAPINE [Suspect]
     Indication: BORDERLINE PERSONALITY DISORDER
     Dosage: 300 MG, UNKNOWN
     Route: 030
     Dates: start: 20110509, end: 20110509
  2. PREGABALIN [Concomitant]
     Dosage: 75 MG, PRN
  3. ZYPREXA [Suspect]
     Indication: BORDERLINE PERSONALITY DISORDER
     Dosage: 5 MG, QD
     Route: 048
  4. BENZODIAZEPINE DERIVATIVES [Concomitant]
     Dosage: UNK UNK, PRN
     Route: 065
  5. CLONAZEPAM [Concomitant]

REACTIONS (7)
  - FIBRIN D DIMER INCREASED [None]
  - SPEECH DISORDER [None]
  - ELECTROCARDIOGRAM T WAVE ABNORMAL [None]
  - BLOOD LACTATE DEHYDROGENASE INCREASED [None]
  - GAIT DISTURBANCE [None]
  - NEUROLEPTIC MALIGNANT SYNDROME [None]
  - NECROTISING FASCIITIS [None]
